FAERS Safety Report 10175819 (Version 1)
Quarter: 2014Q2

REPORT INFORMATION
  Report Type: Spontaneous
  Country: DE (occurrence: DE)
  Receive Date: 20140516
  Receipt Date: 20140516
  Transmission Date: 20141212
  Serious: Yes (Other)
  Sender: FDA-Public Use
  Company Number: DE-DRREDDYS-GER/GER/14/0040343

PATIENT
  Age: 30 Year
  Sex: Female
  Weight: 73 kg

DRUGS (6)
  1. VENLAFAXINE [Suspect]
     Indication: DEPRESSION
     Route: 048
     Dates: start: 20121220, end: 20130917
  2. LEVOTHYROXINE SODIUM [Suspect]
     Indication: HYPOTHYROIDISM
     Route: 048
     Dates: start: 20121220, end: 20130917
  3. ELONTRIL [Suspect]
     Indication: DEPRESSION
     Route: 048
     Dates: start: 20121220, end: 20130917
  4. PRILOCAINE [Suspect]
     Indication: PUDENDAL BLOCK
     Route: 053
     Dates: start: 20130917, end: 20130917
  5. VOMEX A [Concomitant]
     Indication: GASTROENTERITIS
     Route: 048
  6. RHOPHYLAC [Concomitant]
     Indication: PROPHYLAXIS AGAINST RH ISOIMMUNISATION
     Route: 030
     Dates: start: 20130704, end: 20130704

REACTIONS (3)
  - Meconium in amniotic fluid [Unknown]
  - Gastrointestinal disorder [Unknown]
  - Exposure during pregnancy [Unknown]
